FAERS Safety Report 13306035 (Version 1)
Quarter: 2017Q1

REPORT INFORMATION
  Report Type: Report from Study
  Country: CA (occurrence: CA)
  Receive Date: 20170308
  Receipt Date: 20170308
  Transmission Date: 20170428
  Serious: Yes (Other)
  Sender: FDA-Public Use
  Company Number: CA-IPSEN BIOPHARMACEUTICALS, INC.-2017-01767

PATIENT
  Age: 54 Year
  Sex: Female
  Weight: 74.85 kg

DRUGS (13)
  1. PMS PREGABALIN [Concomitant]
  2. QUETIAPINE XR [Concomitant]
     Active Substance: QUETIAPINE
  3. PMS PREGABALIN [Concomitant]
  4. HYDROMORPH CONTIN [Concomitant]
     Active Substance: HYDROMORPHONE
  5. JAMP DOMPERIDONE [Concomitant]
  6. PMS-TRAZODONE [Concomitant]
  7. QUETIAPINE XR [Concomitant]
     Active Substance: QUETIAPINE
  8. HYDROMORPH CONTIN [Concomitant]
     Active Substance: HYDROMORPHONE
  9. JAMP VITAMIN D [Concomitant]
  10. PMS VENLAFAXINE XR [Concomitant]
  11. SOMATULINE AUTOGEL 120MG [Suspect]
     Active Substance: LANREOTIDE ACETATE
     Indication: NEUROENDOCRINE TUMOUR
     Dosage: 240 MG
     Route: 058
  12. PMS-METFORMIN [Concomitant]
  13. RESTORIL [Concomitant]
     Active Substance: TEMAZEPAM

REACTIONS (4)
  - Inappropriate schedule of drug administration [Unknown]
  - Liver function test abnormal [Not Recovered/Not Resolved]
  - Incorrect dose administered [Unknown]
  - Gastrooesophageal reflux disease [Not Recovered/Not Resolved]

NARRATIVE: CASE EVENT DATE: 20170221
